FAERS Safety Report 5153048-6 (Version None)
Quarter: 2006Q4

REPORT INFORMATION
  Report Type: 
  Country: None (occurrence: None)
  Receive Date: 20061117
  Receipt Date: 20061107
  Transmission Date: 20070319
  Serious: Yes (Hospitalization)
  Sender: FDA-Public Use
  Company Number: PHRM2006FR03004

PATIENT
  Age: 80 Year
  Sex: Female

DRUGS (14)
  1. NITRODERM [Concomitant]
  2. KALEORID [Concomitant]
  3. CORTANCYL [Concomitant]
  4. ALDACTONE [Concomitant]
  5. LASIX [Concomitant]
  6. PRAVASTATIN [Concomitant]
  7. HEMIGOXINE [Concomitant]
  8. CELECTOL [Concomitant]
  9. CACIT D3 [Concomitant]
  10. LIORESAL [Concomitant]
  11. MINISINTROM [Concomitant]
  12. NOLVADEX [Concomitant]
     Route: 048
     Dates: start: 20051201
  13. XELODA [Concomitant]
     Dates: start: 20051201, end: 20060701
  14. ZOMETA [Suspect]
     Indication: BREAST CANCER
     Dosage: 4 MG, MONTHLY
     Route: 042
     Dates: start: 20040401, end: 20060601

REACTIONS (5)
  - ABSCESS [None]
  - OSTEONECROSIS [None]
  - SURGERY [None]
  - SWELLING [None]
  - WOUND DEBRIDEMENT [None]
